FAERS Safety Report 8816276 (Version 1)
Quarter: 2012Q4

REPORT INFORMATION
  Report Type: Spontaneous
  Country: US (occurrence: None)
  Receive Date: 20120928
  Receipt Date: 20120928
  Transmission Date: 20130627
  Serious: Yes (Other)
  Sender: FDA-Public Use
  Company Number: None

PATIENT
  Age: 50 Year
  Sex: Male
  Weight: 126.1 kg

DRUGS (2)
  1. ABILIFY [Suspect]
     Indication: HALLUCINATION AUDITORY
     Dosage: Abilify 1 a day
  2. SEROQUEL [Suspect]
     Indication: DRUG THERAPY
     Dosage: Seraquil 1 at night

REACTIONS (5)
  - Weight increased [None]
  - Type 2 diabetes mellitus [None]
  - Somnambulism [None]
  - Enuresis [None]
  - Neuropathy peripheral [None]
